FAERS Safety Report 23642368 (Version 2)
Quarter: 2024Q1

REPORT INFORMATION
  Report Type: Spontaneous
  Country: PT (occurrence: PT)
  Receive Date: 20240318
  Receipt Date: 20240325
  Transmission Date: 20240410
  Serious: No
  Sender: FDA-Public Use
  Company Number: PT-PFIZER INC-PV202400030237

PATIENT

DRUGS (1)
  1. LIDOCAINE HYDROCHLORIDE\METHYLPREDNISOLONE ACETATE [Suspect]
     Active Substance: LIDOCAINE HYDROCHLORIDE\METHYLPREDNISOLONE ACETATE
     Dosage: UNK

REACTIONS (2)
  - Product contamination [Unknown]
  - Product quality issue [Unknown]
